FAERS Safety Report 7398903-1 (Version None)
Quarter: 2011Q1

REPORT INFORMATION
  Report Type: 
  Country: None (occurrence: None)
  Receive Date: 20110328
  Receipt Date: 20110314
  Transmission Date: 20110831
  Serious: Yes (Death)
  Sender: FDA-Public Use
  Company Number: AE 2011-099

PATIENT
  Age: 73 Year
  Sex: Male

DRUGS (1)
  1. FAZACLO ODT [Suspect]
     Dosage: 50 MG DAILY PO
     Route: 048
     Dates: start: 20060718, end: 20101220

REACTIONS (1)
  - DEATH [None]
